FAERS Safety Report 9220069 (Version 1)
Quarter: 2013Q2

REPORT INFORMATION
  Report Type: Report from Study
  Country: VE (occurrence: VE)
  Receive Date: 20130409
  Receipt Date: 20130409
  Transmission Date: 20140414
  Serious: Yes (Hospitalization)
  Sender: FDA-Public Use
  Company Number: VE-ROCHE-1211240

PATIENT
  Age: 61 Year
  Sex: Male
  Weight: 53 kg

DRUGS (2)
  1. XELODA [Suspect]
     Indication: COLON CANCER
     Dosage: 14 DAYS ON AND 7 DAY OFF
     Route: 048
     Dates: start: 20121212, end: 20130403
  2. OXALIPLATIN [Concomitant]
     Indication: COLON CANCER
     Route: 042
     Dates: start: 20121212, end: 20130403

REACTIONS (1)
  - Haematocrit decreased [Not Recovered/Not Resolved]
